FAERS Safety Report 24623964 (Version 2)
Quarter: 2024Q4

REPORT INFORMATION
  Report Type: Spontaneous
  Country: CA (occurrence: CA)
  Receive Date: 20241115
  Receipt Date: 20241122
  Transmission Date: 20250115
  Serious: Yes (Hospitalization)
  Sender: LEO PHARM
  Company Number: CA-LEO Pharma-374903

PATIENT
  Sex: Male

DRUGS (1)
  1. ADBRY [Suspect]
     Active Substance: TRALOKINUMAB-LDRM
     Indication: Rash
     Dosage: LOADING DOSE WAS NOT ADMINISTERED ?FORMAT: PRE-FILLED SYRINGES 150 MG/ML?TREATMENT IS ONGOING
     Route: 058
     Dates: start: 2023

REACTIONS (1)
  - Heart valve replacement [Recovered/Resolved]

NARRATIVE: CASE EVENT DATE: 20241017
